FAERS Safety Report 5329471-3 (Version None)
Quarter: 2007Q2

REPORT INFORMATION
  Report Type: 
  Country: None (occurrence: None)
  Receive Date: 20070221
  Receipt Date: 20060706
  Transmission Date: 20071010
  Serious: Yes (Other)
  Sender: FDA-Public Use
  Company Number: BDI-008406

PATIENT
  Age: 15 Year
  Sex: Male
  Weight: 90 kg

DRUGS (2)
  1. ISOVUE-370 [Suspect]
     Indication: ABDOMINAL PAIN UPPER
     Dosage: 100 ML ONCE IV
     Route: 042
     Dates: start: 20060209, end: 20060209
  2. ISOVUE-370 [Suspect]
     Indication: COMPUTERISED TOMOGRAM
     Dosage: 100 ML ONCE IV
     Route: 042
     Dates: start: 20060209, end: 20060209

REACTIONS (1)
  - HYPERSENSITIVITY [None]
